FAERS Safety Report 7546239-8 (Version None)
Quarter: 2011Q2

REPORT INFORMATION
  Report Type: 
  Country: None (occurrence: None)
  Receive Date: 20110614
  Receipt Date: 20040303
  Transmission Date: 20111010
  Serious: Yes (Hospitalization, Other)
  Sender: FDA-Public Use
  Company Number: PHFR2004IE01299

PATIENT
  Sex: Male

DRUGS (2)
  1. DIAZEPAM [Concomitant]
     Route: 065
  2. CLOZAPINE [Suspect]
     Indication: SCHIZOPHRENIA
     Dosage: 475 MG/DAY
     Route: 048
     Dates: start: 19981020, end: 20040303

REACTIONS (9)
  - VOMITING [None]
  - HEART RATE INCREASED [None]
  - ABDOMINAL PAIN [None]
  - ABDOMINAL DISTENSION [None]
  - HYPOTENSION [None]
  - WHITE BLOOD CELL COUNT INCREASED [None]
  - GASTROENTERITIS [None]
  - DIARRHOEA [None]
  - MALAISE [None]
